FAERS Safety Report 11911385 (Version 2)
Quarter: 2016Q1

REPORT INFORMATION
  Report Type: Spontaneous
  Country: BR (occurrence: BR)
  Receive Date: 20160112
  Receipt Date: 20160325
  Transmission Date: 20160526
  Serious: Yes (Other)
  Sender: FDA-Public Use
  Company Number: BR-SYMPLMED PHARMACEUTICALS-2016SYMPLMED000110

PATIENT

DRUGS (5)
  1. ACERTIL [Suspect]
     Active Substance: PERINDOPRIL ARGININE
     Dosage: 10 MG, QD
     Route: 048
     Dates: start: 2015
  2. NATRILIX                           /00340101/ [Suspect]
     Active Substance: INDAPAMIDE
     Indication: HYPERTENSION
     Dosage: 1.5 MG, QD
     Route: 048
     Dates: start: 2014
  3. ACERTIL [Suspect]
     Active Substance: PERINDOPRIL ARGININE
     Indication: HYPERTENSION
     Dosage: 10 MG, QD
     Route: 048
     Dates: start: 2014, end: 2015
  4. FOLIC ACID. [Concomitant]
     Active Substance: FOLIC ACID
     Indication: PRENATAL CARE
     Dosage: 5 MG, QD
     Dates: start: 201507
  5. ACERTIL [Suspect]
     Active Substance: PERINDOPRIL ARGININE
     Dosage: 10 MG, QD
     Route: 048
     Dates: start: 2015, end: 2015

REACTIONS (3)
  - Drug ineffective [Recovered/Resolved]
  - Headache [Recovered/Resolved]
  - Malaise [Recovered/Resolved]

NARRATIVE: CASE EVENT DATE: 201511
